FAERS Safety Report 10010290 (Version 2)
Quarter: 2014Q2

REPORT INFORMATION
  Report Type: Spontaneous
  Country: CA (occurrence: CA)
  Receive Date: 20140314
  Receipt Date: 20140403
  Transmission Date: 20141212
  Serious: Yes (Other)
  Sender: FDA-Public Use
  Company Number: CA-009507513-1403CAN004728

PATIENT
  Age: 48 Year
  Sex: Female

DRUGS (7)
  1. VICTRELIS [Suspect]
     Indication: CHRONIC HEPATITIS C
     Dosage: 800 MG, TID, WEEK 5 START
     Route: 048
     Dates: start: 20140224, end: 20140322
  2. COPEGUS [Suspect]
     Indication: CHRONIC HEPATITIS C
     Dosage: 1200 MG, ONCE DAILY,FORM OF ADMINISTRATION 42 TABLET/WEEK
     Route: 048
     Dates: start: 20140127
  3. PEGASYS [Suspect]
     Indication: CHRONIC HEPATITIS C
     Dosage: 180 MICROGRAM, QW,FORM OF ADMIN TEXT:0.5ML PRE-FILLED SYRINGE.
     Route: 058
     Dates: start: 20140127
  4. CITALOPRAM [Concomitant]
     Dosage: B.4.K.6
     Route: 065
  5. LORAZEPAM [Concomitant]
     Indication: PAIN
     Dosage: B.4.K.6 FREQUENCY AS REQUIRED(PRN)
     Route: 065
  6. PERCOCET [Concomitant]
     Indication: ANALGESIC THERAPY
     Dosage: B.4.K.6
     Route: 065
  7. HYDROMORPHONE [Concomitant]
     Indication: ANALGESIC THERAPY
     Dosage: B.4.K.6
     Route: 065

REACTIONS (5)
  - Dyspnoea [Recovering/Resolving]
  - Urticaria [Recovering/Resolving]
  - Nausea [Not Recovered/Not Resolved]
  - Alopecia [Not Recovered/Not Resolved]
  - Fatigue [Not Recovered/Not Resolved]
